FAERS Safety Report 9807609 (Version 1)
Quarter: 2014Q1

REPORT INFORMATION
  Report Type: Spontaneous
  Country: US (occurrence: US)
  Receive Date: 20140110
  Receipt Date: 20140110
  Transmission Date: 20141002
  Serious: No
  Sender: FDA-Public Use
  Company Number: US-SANOFI-AVENTIS-2013SA057120

PATIENT
  Age: 64 Year
  Sex: Female
  Weight: 90.25 kg

DRUGS (12)
  1. PLAVIX [Suspect]
     Indication: PERIPHERAL ARTERIAL OCCLUSIVE DISEASE
     Route: 065
     Dates: start: 2006
  2. METFORMIN HYDROCHLORIDE [Suspect]
  3. TENORMIN [Concomitant]
  4. GLYBURIDE [Concomitant]
  5. PLETAL [Concomitant]
  6. NORCO [Concomitant]
     Dosage: UP TO 7 A DAY AS NEEDED
  7. XANAX [Concomitant]
  8. ZANAFLEX [Concomitant]
  9. SYNTHROID [Concomitant]
  10. LASIX [Concomitant]
  11. POTASSIUM [Concomitant]
  12. NEXIUM [Concomitant]

REACTIONS (4)
  - White blood cell count abnormal [Unknown]
  - Viral infection [Unknown]
  - Renal disorder [Unknown]
  - Malaise [Unknown]
